FAERS Safety Report 4315962-0 (Version None)
Quarter: 2004Q1

REPORT INFORMATION
  Report Type: 
  Country: None (occurrence: None)
  Receive Date: 20040311
  Receipt Date: 20040311
  Transmission Date: 20041129
  Serious: Yes (Other)
  Sender: FDA-Public Use
  Company Number: None

PATIENT
  Age: 69 Year
  Sex: Male
  Weight: 111.1313 kg

DRUGS (1)
  1. CORDIS STENT [Suspect]
     Indication: MYOCARDIAL INFARCTION

REACTIONS (7)
  - ARTHRALGIA [None]
  - MYALGIA [None]
  - POST PROCEDURAL COMPLICATION [None]
  - PRURITUS [None]
  - RASH [None]
  - SWELLING [None]
  - URTICARIA [None]
